FAERS Safety Report 15419028 (Version 1)
Quarter: 2018Q3

REPORT INFORMATION
  Report Type: Spontaneous
  Country: IT (occurrence: IT)
  Receive Date: 20180924
  Receipt Date: 20180924
  Transmission Date: 20181010
  Serious: Yes (Hospitalization)
  Sender: FDA-Public Use
  Company Number: IT-SA-2018SA256666

PATIENT
  Age: 84 Year
  Sex: Male

DRUGS (11)
  1. AVODART [Concomitant]
     Active Substance: DUTASTERIDE
  2. ACETYLSALICYLIC ACID [Suspect]
     Active Substance: ASPIRIN
  3. AMIODARONE [Concomitant]
     Active Substance: AMIODARONE
  4. METFORMIN HYDROCHLORIDE. [Suspect]
     Active Substance: METFORMIN HYDROCHLORIDE
     Indication: DIABETES MELLITUS
  5. TAMSULOSIN HYDROCHLORIDE. [Concomitant]
     Active Substance: TAMSULOSIN HYDROCHLORIDE
  6. GABAPENTIN. [Concomitant]
     Active Substance: GABAPENTIN
  7. INSULIN [Concomitant]
     Active Substance: INSULIN NOS
  8. CARDIRENE [Concomitant]
     Active Substance: ASPIRIN DL-LYSINE
  9. CLEXANE [Suspect]
     Active Substance: ENOXAPARIN SODIUM
  10. SPIRIVA [Concomitant]
     Active Substance: TIOTROPIUM BROMIDE MONOHYDRATE
  11. RANEXA [Concomitant]
     Active Substance: RANOLAZINE

REACTIONS (4)
  - Lactic acidosis [Recovering/Resolving]
  - Abdominal pain [Recovering/Resolving]
  - Ulcer haemorrhage [Recovering/Resolving]
  - Haematemesis [Recovering/Resolving]

NARRATIVE: CASE EVENT DATE: 20180612
